FAERS Safety Report 23283383 (Version 1)
Quarter: 2023Q4

REPORT INFORMATION
  Report Type: Spontaneous
  Country: IR (occurrence: IR)
  Receive Date: 20231211
  Receipt Date: 20231211
  Transmission Date: 20240109
  Serious: Yes (Other)
  Sender: FDA-Public Use
  Company Number: IR-SA-2023SA368713

PATIENT
  Age: 12 Year
  Sex: Female

DRUGS (8)
  1. TOUJEO [Suspect]
     Active Substance: INSULIN GLARGINE
  2. LANTUS [Concomitant]
     Active Substance: INSULIN GLARGINE
  3. LEVEMIR [Concomitant]
     Active Substance: INSULIN DETEMIR
  4. NOVORAPID [Concomitant]
     Active Substance: INSULIN ASPART
  5. MELOXICAM [Concomitant]
     Active Substance: MELOXICAM
  6. METHOTREXATE [Concomitant]
     Active Substance: METHOTREXATE
  7. SULFASALAZINE [Concomitant]
     Active Substance: SULFASALAZINE
  8. CORTICOSTEROID NOS [Concomitant]
     Active Substance: CORTICOSTEROID NOS

REACTIONS (4)
  - Rheumatoid arthritis [Unknown]
  - Erythema [Unknown]
  - Pruritus [Unknown]
  - Hypersensitivity [Unknown]
